FAERS Safety Report 4972202-7 (Version None)
Quarter: 2006Q2

REPORT INFORMATION
  Report Type: 
  Country: None (occurrence: None)
  Receive Date: 20060413
  Receipt Date: 20060320
  Transmission Date: 20061013
  Serious: Yes (Other)
  Sender: FDA-Public Use
  Company Number: NL-GLAXOSMITHKLINE-B0417566A

PATIENT
  Age: 45 Year
  Sex: Female
  Weight: 110 kg

DRUGS (1)
  1. LAMOTRIGINE [Suspect]
     Indication: EPILEPSY
     Dosage: 100MG PER DAY
     Dates: start: 19990101

REACTIONS (7)
  - ALOPECIA [None]
  - BLISTER [None]
  - BREAST CANCER [None]
  - BREAST CANCER FEMALE [None]
  - CONDITION AGGRAVATED [None]
  - HAIR TEXTURE ABNORMAL [None]
  - THROMBOSIS [None]
